FAERS Safety Report 14490197 (Version 1)
Quarter: 2018Q1

REPORT INFORMATION
  Report Type: Spontaneous
  Country: JP (occurrence: JP)
  Receive Date: 20180206
  Receipt Date: 20180206
  Transmission Date: 20180509
  Serious: Yes (Other)
  Sender: FDA-Public Use
  Company Number: JP-009507513-1802JPN000664

PATIENT
  Age: 94 Year
  Sex: Male

DRUGS (1)
  1. IMIPENEM AND CILASTATIN [Suspect]
     Active Substance: CILASTATIN SODIUM\IMIPENEM
     Indication: PYODERMA GANGRENOSUM

REACTIONS (2)
  - Pyoderma gangrenosum [Recovered/Resolved]
  - Drug ineffective [Unknown]
